FAERS Safety Report 8119011-8 (Version None)
Quarter: 2012Q1

REPORT INFORMATION
  Report Type: 
  Country: None (occurrence: None)
  Receive Date: 20120207
  Receipt Date: 20120125
  Transmission Date: 20120608
  Serious: Yes (Hospitalization, Other)
  Sender: FDA-Public Use
  Company Number: US-ELI_LILLY_AND_COMPANY-US201107006235

PATIENT
  Sex: Female
  Weight: 86 kg

DRUGS (11)
  1. CELEBREX [Concomitant]
     Dosage: UNK, UNKNOWN
     Route: 065
  2. FORTEO [Suspect]
     Indication: OSTEOPOROSIS
     Dosage: 20 UG, UNKNOWN
     Route: 065
  3. COLACE [Concomitant]
     Dosage: UNK, UNKNOWN
     Route: 065
  4. HIDROCLOROTIAZIDA [Concomitant]
     Dosage: UNK, UNKNOWN
     Route: 065
  5. ASPIRIN [Concomitant]
     Dosage: UNK, UNKNOWN
     Route: 065
  6. CELEXA [Concomitant]
     Dosage: UNK, UNKNOWN
     Route: 065
  7. ADVAIR DISKUS 100/50 [Concomitant]
     Dosage: UNK, UNKNOWN
     Route: 065
  8. VITAMIN D [Concomitant]
     Dosage: UNK, UNKNOWN
     Route: 065
  9. FERROUS SULFATE TAB [Concomitant]
     Dosage: UNK, UNKNOWN
     Route: 065
  10. LOVAZA [Concomitant]
     Dosage: UNK, UNKNOWN
     Route: 065
  11. MIRALAX [Concomitant]
     Dosage: UNK, UNKNOWN
     Route: 065

REACTIONS (8)
  - MALAISE [None]
  - NAUSEA [None]
  - INJECTION SITE HAEMATOMA [None]
  - UPPER LIMB FRACTURE [None]
  - ATRIAL FIBRILLATION [None]
  - FRACTURE NONUNION [None]
  - EMOTIONAL DISTRESS [None]
  - HOSPITALISATION [None]
